FAERS Safety Report 20944909 (Version 1)
Quarter: 2022Q2

REPORT INFORMATION
  Report Type: Spontaneous
  Country: US (occurrence: US)
  Receive Date: 20220610
  Receipt Date: 20220610
  Transmission Date: 20220721
  Serious: Yes (Hospitalization)
  Sender: FDA-Public Use
  Company Number: US-MYLANLABS-2022M1043248

PATIENT
  Age: 49 Year
  Sex: Male

DRUGS (2)
  1. METOPROLOL [Suspect]
     Active Substance: METOPROLOL
     Indication: Ventricular fibrillation
     Dosage: UNK
  2. QUINIDINE [Suspect]
     Active Substance: QUINIDINE
     Indication: Ventricular fibrillation
     Dosage: UNK

REACTIONS (1)
  - Drug ineffective [Unknown]
